FAERS Safety Report 6593874-X (Version None)
Quarter: 2010Q1

REPORT INFORMATION
  Report Type: 
  Country: None (occurrence: None)
  Receive Date: 20100222
  Receipt Date: 20100209
  Transmission Date: 20100710
  Serious: Yes (Other)
  Sender: FDA-Public Use
  Company Number: US-ELI_LILLY_AND_COMPANY-US201001003208

PATIENT
  Sex: Male
  Weight: 102.49 kg

DRUGS (1)
  1. ZYPREXA [Suspect]
     Indication: SCHIZOAFFECTIVE DISORDER BIPOLAR TYPE
     Dosage: 30 MG, EACH EVENING
     Dates: start: 20091119

REACTIONS (2)
  - OVERDOSE [None]
  - WEIGHT INCREASED [None]
